FAERS Safety Report 25517015 (Version 1)
Quarter: 2025Q3

REPORT INFORMATION
  Report Type: Spontaneous
  Country: CA (occurrence: CA)
  Receive Date: 20250704
  Receipt Date: 20250704
  Transmission Date: 20251021
  Serious: Yes (Death, Life-Threatening, Hospitalization, Disabling, Other)
  Sender: UCB
  Company Number: CA-UCBSA-2025038886

PATIENT
  Age: 40 Year
  Sex: Female
  Weight: 96 kg

DRUGS (327)
  1. CIMZIA [Suspect]
     Active Substance: CERTOLIZUMAB PEGOL
     Indication: Product used for unknown indication
  2. CIMZIA [Suspect]
     Active Substance: CERTOLIZUMAB PEGOL
     Indication: Rheumatoid arthritis
     Route: 058
  3. CIMZIA [Suspect]
     Active Substance: CERTOLIZUMAB PEGOL
     Indication: Psoriasis
  4. CIMZIA [Suspect]
     Active Substance: CERTOLIZUMAB PEGOL
  5. CIMZIA [Suspect]
     Active Substance: CERTOLIZUMAB PEGOL
  6. CIMZIA [Suspect]
     Active Substance: CERTOLIZUMAB PEGOL
  7. CIMZIA [Suspect]
     Active Substance: CERTOLIZUMAB PEGOL
  8. CIMZIA [Suspect]
     Active Substance: CERTOLIZUMAB PEGOL
  9. CIMZIA [Suspect]
     Active Substance: CERTOLIZUMAB PEGOL
  10. CETIRIZINE HYDROCHLORIDE [Suspect]
     Active Substance: CETIRIZINE HYDROCHLORIDE
     Indication: Product use in unapproved indication
  11. CETIRIZINE HYDROCHLORIDE [Suspect]
     Active Substance: CETIRIZINE HYDROCHLORIDE
     Indication: Rheumatoid arthritis
  12. ACETAMINOPHEN [Suspect]
     Active Substance: ACETAMINOPHEN
     Indication: Product used for unknown indication
  13. ACETAMINOPHEN AND CODEINE [Suspect]
     Active Substance: ACETAMINOPHEN\CODEINE PHOSPHATE
     Indication: Product used for unknown indication
  14. ACTEMRA [Suspect]
     Active Substance: TOCILIZUMAB
     Indication: Product used for unknown indication
  15. ALENDRONATE SODIUM [Suspect]
     Active Substance: ALENDRONATE SODIUM
     Indication: Product used for unknown indication
  16. ALENDRONATE SODIUM [Suspect]
     Active Substance: ALENDRONATE SODIUM
     Indication: Rheumatoid arthritis
  17. ALENDRONATE SODIUM [Suspect]
     Active Substance: ALENDRONATE SODIUM
     Route: 048
  18. ALENDRONATE SODIUM [Suspect]
     Active Substance: ALENDRONATE SODIUM
     Route: 048
  19. LEFLUNOMIDE [Suspect]
     Active Substance: LEFLUNOMIDE
     Indication: Product used for unknown indication
  20. PREDNISONE [Suspect]
     Active Substance: PREDNISONE
     Indication: Product used for unknown indication
     Route: 048
  21. ARAVA [Suspect]
     Active Substance: LEFLUNOMIDE
     Indication: Product used for unknown indication
  22. ATOMOXETINE HYDROCHLORIDE [Suspect]
     Active Substance: ATOMOXETINE HYDROCHLORIDE
     Indication: Product used for unknown indication
  23. AZATHIOPRINE [Suspect]
     Active Substance: AZATHIOPRINE
     Indication: Product used for unknown indication
  24. AZATHIOPRINE [Suspect]
     Active Substance: AZATHIOPRINE
     Indication: Product use in unapproved indication
  25. BERINERT [Suspect]
     Active Substance: HUMAN C1-ESTERASE INHIBITOR
     Indication: Product used for unknown indication
  26. BOTULINUM TOXIN TYPE A [Suspect]
     Active Substance: BOTULINUM TOXIN TYPE A
     Indication: Product used for unknown indication
  27. BUTRANS [Suspect]
     Active Substance: BUPRENORPHINE
     Indication: Product used for unknown indication
  28. CALCIUM ASCORBATE [Suspect]
     Active Substance: CALCIUM ASCORBATE
     Indication: Product used for unknown indication
  29. CALCIUM CARBONATE\CHOLECALCIFEROL [Suspect]
     Active Substance: CALCIUM CARBONATE\CHOLECALCIFEROL
     Indication: Product used for unknown indication
  30. CALCIUM CITRATE [Suspect]
     Active Substance: CALCIUM CITRATE
     Indication: Product used for unknown indication
  31. CALCIUM GLUBIONATE [Suspect]
     Active Substance: CALCIUM GLUBIONATE
     Indication: Product used for unknown indication
  32. CANDESARTAN [Suspect]
     Active Substance: CANDESARTAN
     Indication: Migraine
  33. CELECOXIB [Suspect]
     Active Substance: CELECOXIB
     Indication: Product used for unknown indication
  34. CORTISONE ACETATE [Suspect]
     Active Substance: CORTISONE ACETATE
     Indication: Product used for unknown indication
  35. COSENTYX [Suspect]
     Active Substance: SECUKINUMAB
     Indication: Psoriatic arthropathy
  36. COSENTYX [Suspect]
     Active Substance: SECUKINUMAB
     Route: 048
  37. COSENTYX [Suspect]
     Active Substance: SECUKINUMAB
  38. COSENTYX [Suspect]
     Active Substance: SECUKINUMAB
  39. COSENTYX [Suspect]
     Active Substance: SECUKINUMAB
  40. COSENTYX [Suspect]
     Active Substance: SECUKINUMAB
  41. CUPRIC OXIDE\FOLIC ACID\NIACIN\ZINC OXIDE [Suspect]
     Active Substance: CUPRIC OXIDE\FOLIC ACID\NIACIN\ZINC OXIDE
     Indication: Product used for unknown indication
  42. DESOGESTREL\ETHINYL ESTRADIOL [Concomitant]
     Active Substance: DESOGESTREL\ETHINYL ESTRADIOL
     Indication: Product used for unknown indication
  43. DESOXIMETASONE [Suspect]
     Active Substance: DESOXIMETASONE
     Indication: Product used for unknown indication
  44. DICLOFENAC [Suspect]
     Active Substance: DICLOFENAC
     Indication: Product used for unknown indication
  45. DICLOFENAC POTASSIUM [Suspect]
     Active Substance: DICLOFENAC POTASSIUM
     Indication: Product used for unknown indication
  46. DICLOFENAC SODIUM [Suspect]
     Active Substance: DICLOFENAC SODIUM
     Indication: Product used for unknown indication
  47. DOMPERIDONE MALEATE [Suspect]
     Active Substance: DOMPERIDONE MALEATE
     Indication: Product used for unknown indication
  48. ENBREL [Suspect]
     Active Substance: ETANERCEPT
     Indication: Product used for unknown indication
  49. ERELZI [Suspect]
     Active Substance: ETANERCEPT-SZZS
     Indication: Rheumatoid arthritis
     Route: 058
  50. ERELZI [Suspect]
     Active Substance: ETANERCEPT-SZZS
     Route: 058
  51. ERELZI [Suspect]
     Active Substance: ETANERCEPT-SZZS
  52. ERELZI [Suspect]
     Active Substance: ETANERCEPT-SZZS
  53. ERELZI [Suspect]
     Active Substance: ETANERCEPT-SZZS
     Route: 058
  54. ERELZI [Suspect]
     Active Substance: ETANERCEPT-SZZS
     Route: 058
  55. ERELZI [Suspect]
     Active Substance: ETANERCEPT-SZZS
  56. ERENUMAB-AOOE [Suspect]
     Active Substance: ERENUMAB-AOOE
     Indication: Migraine
     Route: 058
  57. ERGOCALCIFEROL [Suspect]
     Active Substance: ERGOCALCIFEROL
     Indication: Product used for unknown indication
  58. FLUMETHASONE [Suspect]
     Active Substance: FLUMETHASONE
     Indication: Product used for unknown indication
  59. FLUMETHASONE PIVALATE [Suspect]
     Active Substance: FLUMETHASONE PIVALATE
     Indication: Product used for unknown indication
  60. FLUMETHASONE PIVALATE [Suspect]
     Active Substance: FLUMETHASONE PIVALATE
  61. FOLIC ACID [Suspect]
     Active Substance: FOLIC ACID
     Indication: Product used for unknown indication
  62. FOSAMAX [Suspect]
     Active Substance: ALENDRONATE SODIUM
     Indication: Product used for unknown indication
  63. GOLD [Suspect]
     Active Substance: GOLD
     Indication: Product used for unknown indication
  64. HAIR KERATIN AMINO ACIDS GOLD COMPLEX [Suspect]
     Active Substance: HAIR KERATIN AMINO ACIDS GOLD COMPLEX
     Indication: Product used for unknown indication
  65. GOLD SODIUM THIOMALATE [Suspect]
     Active Substance: GOLD SODIUM THIOMALATE
     Indication: Product used for unknown indication
  66. HYDROCORTISONE BUTYRATE [Suspect]
     Active Substance: HYDROCORTISONE BUTYRATE
     Indication: Product used for unknown indication
  67. HYDROCORTISONE BUTYRATE [Suspect]
     Active Substance: HYDROCORTISONE BUTYRATE
  68. HYDROXYCHLOROQUINE [Suspect]
     Active Substance: HYDROXYCHLOROQUINE
     Indication: Product used for unknown indication
  69. HYDROXYCHLOROQUINE SULFATE [Suspect]
     Active Substance: HYDROXYCHLOROQUINE SULFATE
     Indication: Rheumatoid arthritis
     Dosage: 25 MILLIGRAM, WEEKLY (QW)
  70. HYDROXYCHLOROQUINE SULFATE [Suspect]
     Active Substance: HYDROXYCHLOROQUINE SULFATE
     Route: 048
  71. HYDROXYCHLOROQUINE SULFATE [Suspect]
     Active Substance: HYDROXYCHLOROQUINE SULFATE
  72. HYDROXYCHLOROQUINE SULFATE [Suspect]
     Active Substance: HYDROXYCHLOROQUINE SULFATE
     Dosage: 25 MILLIGRAM, WEEKLY (QW)
     Route: 058
  73. HYDROXYCHLOROQUINE SULFATE [Suspect]
     Active Substance: HYDROXYCHLOROQUINE SULFATE
     Dosage: 25 MILLIGRAM, WEEKLY (QW)
     Route: 048
  74. HYDROXYCHLOROQUINE SULFATE [Suspect]
     Active Substance: HYDROXYCHLOROQUINE SULFATE
     Dosage: 25 MILLIGRAM, WEEKLY (QW)
     Route: 013
  75. HYRIMOZ [Suspect]
     Active Substance: ADALIMUMAB-ADAZ
     Indication: Rheumatoid arthritis
     Route: 058
  76. HYRIMOZ [Suspect]
     Active Substance: ADALIMUMAB-ADAZ
     Route: 058
  77. HYRIMOZ [Suspect]
     Active Substance: ADALIMUMAB-ADAZ
     Route: 058
  78. HYRIMOZ [Suspect]
     Active Substance: ADALIMUMAB-ADAZ
  79. HYRIMOZ [Suspect]
     Active Substance: ADALIMUMAB-ADAZ
  80. HYRIMOZ [Suspect]
     Active Substance: ADALIMUMAB-ADAZ
     Route: 058
  81. HYRIMOZ [Suspect]
     Active Substance: ADALIMUMAB-ADAZ
     Route: 058
  82. HYRIMOZ [Suspect]
     Active Substance: ADALIMUMAB-ADAZ
     Route: 058
  83. INFLIXIMAB [Suspect]
     Active Substance: INFLIXIMAB
     Indication: Rheumatoid arthritis
  84. INFLIXIMAB [Suspect]
     Active Substance: INFLIXIMAB
  85. INFLIXIMAB [Suspect]
     Active Substance: INFLIXIMAB
  86. INFLIXIMAB [Suspect]
     Active Substance: INFLIXIMAB
  87. INFLIXIMAB [Suspect]
     Active Substance: INFLIXIMAB
  88. INFLIXIMAB [Suspect]
     Active Substance: INFLIXIMAB
  89. INFLIXIMAB [Suspect]
     Active Substance: INFLIXIMAB
  90. INFLIXIMAB [Suspect]
     Active Substance: INFLIXIMAB
  91. ISOPROPYL ALCOHOL [Suspect]
     Active Substance: ISOPROPYL ALCOHOL
     Indication: Product used for unknown indication
  92. KEVZARA [Suspect]
     Active Substance: SARILUMAB
     Indication: Product used for unknown indication
  93. LAMICTAL [Suspect]
     Active Substance: LAMOTRIGINE
     Indication: Product used for unknown indication
  94. MAGNESIUM CITRATE [Suspect]
     Active Substance: MAGNESIUM CITRATE
     Indication: Product used for unknown indication
  95. MAGNESIUM CITRATE [Suspect]
     Active Substance: MAGNESIUM CITRATE
  96. MAGNESIUM CITRATE [Suspect]
     Active Substance: MAGNESIUM CITRATE
  97. MAGNESIUM CITRATE [Suspect]
     Active Substance: MAGNESIUM CITRATE
  98. MAGNESIUM CITRATE [Suspect]
     Active Substance: MAGNESIUM CITRATE
  99. METFORMIN HYDROCHLORIDE [Suspect]
     Active Substance: METFORMIN HYDROCHLORIDE
     Indication: Product used for unknown indication
  100. METHYLPREDNISOLONE [Suspect]
     Active Substance: METHYLPREDNISOLONE
     Indication: Rheumatoid arthritis
     Dosage: 25 MILLIGRAM, WEEKLY (QW)
     Route: 048
  101. METHYLPREDNISOLONE [Suspect]
     Active Substance: METHYLPREDNISOLONE
     Route: 048
  102. METHYLPREDNISOLONE [Suspect]
     Active Substance: METHYLPREDNISOLONE
     Route: 058
  103. METHYLPREDNISOLONE SODIUM SUCCINATE [Suspect]
     Active Substance: METHYLPREDNISOLONE SODIUM SUCCINATE
     Indication: Product used for unknown indication
  104. MINOCYCLINE HYDROCHLORIDE [Suspect]
     Active Substance: MINOCYCLINE HYDROCHLORIDE
     Indication: Product used for unknown indication
  105. MINOCYCLINE HYDROCHLORIDE [Suspect]
     Active Substance: MINOCYCLINE HYDROCHLORIDE
     Route: 048
  106. MYOCHRYSINE [Suspect]
     Active Substance: GOLD SODIUM THIOMALATE
     Indication: Product used for unknown indication
  107. MYOCHRYSINE [Suspect]
     Active Substance: GOLD SODIUM THIOMALATE
  108. MYOCHRYSINE [Suspect]
     Active Substance: GOLD SODIUM THIOMALATE
     Dosage: 20 MILLIGRAM, ONCE DAILY (QD)
     Route: 048
  109. MYOCHRYSINE [Suspect]
     Active Substance: GOLD SODIUM THIOMALATE
  110. MYOCHRYSINE [Suspect]
     Active Substance: GOLD SODIUM THIOMALATE
     Dosage: 50 MILLIGRAM, ONCE DAILY (QD)
     Route: 048
  111. MYOCHRYSINE [Suspect]
     Active Substance: GOLD SODIUM THIOMALATE
  112. MYOCHRYSINE [Suspect]
     Active Substance: GOLD SODIUM THIOMALATE
  113. MYOCHRYSINE [Suspect]
     Active Substance: GOLD SODIUM THIOMALATE
  114. MYOCHRYSINE [Suspect]
     Active Substance: GOLD SODIUM THIOMALATE
  115. MYOCHRYSINE [Suspect]
     Active Substance: GOLD SODIUM THIOMALATE
  116. MYOCHRYSINE [Suspect]
     Active Substance: GOLD SODIUM THIOMALATE
  117. MYOCHRYSINE [Suspect]
     Active Substance: GOLD SODIUM THIOMALATE
  118. MYOCHRYSINE [Suspect]
     Active Substance: GOLD SODIUM THIOMALATE
  119. MYOCHRYSINE [Suspect]
     Active Substance: GOLD SODIUM THIOMALATE
  120. MYOCHRYSINE [Suspect]
     Active Substance: GOLD SODIUM THIOMALATE
  121. MYOCHRYSINE [Suspect]
     Active Substance: GOLD SODIUM THIOMALATE
  122. MYOCHRYSINE [Suspect]
     Active Substance: GOLD SODIUM THIOMALATE
  123. MYOCHRYSINE [Suspect]
     Active Substance: GOLD SODIUM THIOMALATE
  124. MYOCHRYSINE [Suspect]
     Active Substance: GOLD SODIUM THIOMALATE
  125. MYRBETRIQ [Suspect]
     Active Substance: MIRABEGRON
     Indication: Rheumatoid arthritis
  126. NAPROXEN [Suspect]
     Active Substance: NAPROXEN
     Indication: Product used for unknown indication
     Dosage: 1 DOSAGE FORM, ONCE DAILY (QD)
     Route: 048
  127. NAPROXEN [Suspect]
     Active Substance: NAPROXEN
  128. NAPROXEN [Suspect]
     Active Substance: NAPROXEN
     Route: 048
  129. NAPROXEN [Suspect]
     Active Substance: NAPROXEN
     Route: 048
  130. NAPROXEN [Suspect]
     Active Substance: NAPROXEN
     Route: 048
  131. NAPROXEN [Suspect]
     Active Substance: NAPROXEN
  132. NAPROXEN [Concomitant]
     Active Substance: NAPROXEN
     Indication: Product used for unknown indication
  133. NAPROXEN SODIUM [Suspect]
     Active Substance: NAPROXEN SODIUM
     Indication: Product used for unknown indication
  134. NUCALA [Suspect]
     Active Substance: MEPOLIZUMAB
     Indication: Product used for unknown indication
  135. NUCALA [Suspect]
     Active Substance: MEPOLIZUMAB
  136. NUCALA [Suspect]
     Active Substance: MEPOLIZUMAB
  137. NUCALA [Suspect]
     Active Substance: MEPOLIZUMAB
     Route: 048
  138. NUCALA [Suspect]
     Active Substance: MEPOLIZUMAB
  139. NUCALA [Suspect]
     Active Substance: MEPOLIZUMAB
  140. NUCALA [Suspect]
     Active Substance: MEPOLIZUMAB
     Dosage: 400 MILLIGRAM, ONCE DAILY (QD)
     Route: 048
  141. NUCALA [Suspect]
     Active Substance: MEPOLIZUMAB
  142. NUCALA [Suspect]
     Active Substance: MEPOLIZUMAB
  143. NUCALA [Suspect]
     Active Substance: MEPOLIZUMAB
     Route: 048
  144. NUCALA [Suspect]
     Active Substance: MEPOLIZUMAB
     Route: 048
  145. NUCALA [Suspect]
     Active Substance: MEPOLIZUMAB
     Route: 048
  146. NUCALA [Suspect]
     Active Substance: MEPOLIZUMAB
     Route: 048
  147. NUCALA [Suspect]
     Active Substance: MEPOLIZUMAB
     Dosage: 400 MILLIGRAM, ONCE DAILY (QD)
     Route: 048
  148. NUCALA [Suspect]
     Active Substance: MEPOLIZUMAB
     Route: 048
  149. NUCALA [Suspect]
     Active Substance: MEPOLIZUMAB
     Route: 048
  150. NUCALA [Suspect]
     Active Substance: MEPOLIZUMAB
     Route: 048
  151. NUCALA [Suspect]
     Active Substance: MEPOLIZUMAB
     Route: 048
  152. NUCALA [Suspect]
     Active Substance: MEPOLIZUMAB
     Route: 048
  153. NUCALA [Suspect]
     Active Substance: MEPOLIZUMAB
     Route: 048
  154. NUCALA [Suspect]
     Active Substance: MEPOLIZUMAB
     Route: 048
  155. NUCALA [Suspect]
     Active Substance: MEPOLIZUMAB
  156. ORENCIA [Suspect]
     Active Substance: ABATACEPT
     Indication: Rheumatoid arthritis
  157. ORENCIA [Suspect]
     Active Substance: ABATACEPT
  158. ORENCIA [Suspect]
     Active Substance: ABATACEPT
  159. ORENCIA [Suspect]
     Active Substance: ABATACEPT
  160. OTEZLA [Suspect]
     Active Substance: APREMILAST
     Indication: Product used for unknown indication
  161. OXYCODONE [Suspect]
     Active Substance: OXYCODONE
     Indication: Product used for unknown indication
  162. PHTHALYLSULFATHIAZOLE [Suspect]
     Active Substance: PHTHALYLSULFATHIAZOLE
     Indication: Rheumatoid arthritis
     Route: 058
  163. PHTHALYLSULFATHIAZOLE [Suspect]
     Active Substance: PHTHALYLSULFATHIAZOLE
     Route: 058
  164. PREDNISONE [Suspect]
     Active Substance: PREDNISONE
     Indication: Rheumatoid arthritis
  165. PSEUDOEPHEDRINE [Suspect]
     Active Substance: PSEUDOEPHEDRINE
     Indication: Product used for unknown indication
  166. PSEUDOEPHEDRINE HYDROCHLORIDE [Suspect]
     Active Substance: PSEUDOEPHEDRINE HYDROCHLORIDE
     Indication: Product used for unknown indication
  167. PSEUDOEPHEDRINE HYDROCHLORIDE [Suspect]
     Active Substance: PSEUDOEPHEDRINE HYDROCHLORIDE
  168. PSEUDOEPHEDRINE HYDROCHLORIDE [Suspect]
     Active Substance: PSEUDOEPHEDRINE HYDROCHLORIDE
     Route: 058
  169. PSEUDOEPHEDRINE HYDROCHLORIDE [Suspect]
     Active Substance: PSEUDOEPHEDRINE HYDROCHLORIDE
     Route: 058
  170. PSEUDOEPHEDRINE HYDROCHLORIDE [Suspect]
     Active Substance: PSEUDOEPHEDRINE HYDROCHLORIDE
     Route: 058
  171. PSEUDOEPHEDRINE HYDROCHLORIDE [Suspect]
     Active Substance: PSEUDOEPHEDRINE HYDROCHLORIDE
     Route: 058
  172. PSEUDOEPHEDRINE HYDROCHLORIDE [Suspect]
     Active Substance: PSEUDOEPHEDRINE HYDROCHLORIDE
     Route: 058
  173. PSEUDOEPHEDRINE HYDROCHLORIDE [Suspect]
     Active Substance: PSEUDOEPHEDRINE HYDROCHLORIDE
  174. PSEUDOEPHEDRINE HYDROCHLORIDE [Suspect]
     Active Substance: PSEUDOEPHEDRINE HYDROCHLORIDE
  175. PSEUDOEPHEDRINE HYDROCHLORIDE [Suspect]
     Active Substance: PSEUDOEPHEDRINE HYDROCHLORIDE
  176. PSEUDOEPHEDRINE HYDROCHLORIDE [Suspect]
     Active Substance: PSEUDOEPHEDRINE HYDROCHLORIDE
     Route: 058
  177. PSEUDOEPHEDRINE HYDROCHLORIDE [Suspect]
     Active Substance: PSEUDOEPHEDRINE HYDROCHLORIDE
  178. RAMIPRIL [Suspect]
     Active Substance: RAMIPRIL
     Indication: Off label use
     Route: 016
  179. RANITIDINE HYDROCHLORIDE [Suspect]
     Active Substance: RANITIDINE HYDROCHLORIDE
     Indication: Product used for unknown indication
  180. RANITIDINE HYDROCHLORIDE [Suspect]
     Active Substance: RANITIDINE HYDROCHLORIDE
     Route: 042
  181. RANITIDINE HYDROCHLORIDE [Suspect]
     Active Substance: RANITIDINE HYDROCHLORIDE
  182. RANITIDINE HYDROCHLORIDE [Suspect]
     Active Substance: RANITIDINE HYDROCHLORIDE
  183. RANITIDINE HYDROCHLORIDE [Suspect]
     Active Substance: RANITIDINE HYDROCHLORIDE
  184. REMICADE [Suspect]
     Active Substance: INFLIXIMAB
     Indication: Product used for unknown indication
     Route: 042
  185. RITUXIMAB [Suspect]
     Active Substance: RITUXIMAB
     Indication: Rheumatoid arthritis
  186. RITUXIMAB [Suspect]
     Active Substance: RITUXIMAB
     Dosage: 2 GRAM, ONCE DAILY (QD)
  187. RITUXIMAB [Suspect]
     Active Substance: RITUXIMAB
     Dosage: 2000 MILLIGRAM, ONCE DAILY (QD)
  188. RITUXIMAB [Suspect]
     Active Substance: RITUXIMAB
     Dosage: 2 GRAM, ONCE DAILY (QD)
  189. RITUXIMAB [Suspect]
     Active Substance: RITUXIMAB
     Dosage: 1000 MILLIGRAM, ONCE DAILY (QD)
     Route: 042
  190. RITUXIMAB [Suspect]
     Active Substance: RITUXIMAB
     Dosage: 2000 MILLIGRAM, ONCE DAILY (QD)
  191. RITUXIMAB [Suspect]
     Active Substance: RITUXIMAB
     Route: 019
  192. RITUXIMAB [Suspect]
     Active Substance: RITUXIMAB
     Route: 016
  193. RITUXIMAB [Suspect]
     Active Substance: RITUXIMAB
  194. RITUXIMAB [Suspect]
     Active Substance: RITUXIMAB
  195. RITUXIMAB [Suspect]
     Active Substance: RITUXIMAB
     Dosage: 2000 MILLIGRAM, ONCE DAILY (QD)
  196. RITUXIMAB [Suspect]
     Active Substance: RITUXIMAB
  197. RITUXIMAB [Suspect]
     Active Substance: RITUXIMAB
  198. RITUXIMAB [Suspect]
     Active Substance: RITUXIMAB
     Dosage: 2000 MILLIGRAM, ONCE DAILY (QD)
  199. RITUXIMAB [Suspect]
     Active Substance: RITUXIMAB
     Route: 042
  200. RITUXIMAB [Suspect]
     Active Substance: RITUXIMAB
     Route: 016
  201. RITUXIMAB [Suspect]
     Active Substance: RITUXIMAB
     Dosage: 2 GRAM, 2X/DAY (BID)
     Route: 042
  202. RITUXIMAB [Suspect]
     Active Substance: RITUXIMAB
     Dosage: 2000 MILLIGRAM, ONCE DAILY (QD)
  203. RITUXIMAB [Suspect]
     Active Substance: RITUXIMAB
     Dosage: 1 GRAM, 2X/DAY (BID)
     Route: 042
  204. RITUXIMAB [Suspect]
     Active Substance: RITUXIMAB
     Route: 042
  205. RITUXIMAB [Suspect]
     Active Substance: RITUXIMAB
     Route: 042
  206. RITUXIMAB [Suspect]
     Active Substance: RITUXIMAB
  207. RITUXIMAB [Suspect]
     Active Substance: RITUXIMAB
     Route: 016
  208. RITUXIMAB [Suspect]
     Active Substance: RITUXIMAB
     Route: 043
  209. RITUXIMAB [Suspect]
     Active Substance: RITUXIMAB
     Route: 042
  210. RITUXIMAB [Suspect]
     Active Substance: RITUXIMAB
     Route: 042
  211. RITUXIMAB [Suspect]
     Active Substance: RITUXIMAB
  212. RITUXIMAB [Suspect]
     Active Substance: RITUXIMAB
  213. RITUXIMAB [Suspect]
     Active Substance: RITUXIMAB
     Dosage: 2000 MILLIGRAM, ONCE DAILY (QD)
     Route: 042
  214. RITUXIMAB [Suspect]
     Active Substance: RITUXIMAB
     Dosage: UNK, ONCE DAILY (QD)
     Route: 042
  215. RITUXIMAB [Suspect]
     Active Substance: RITUXIMAB
  216. RITUXIMAB [Suspect]
     Active Substance: RITUXIMAB
     Route: 042
  217. RITUXIMAB [Suspect]
     Active Substance: RITUXIMAB
     Dosage: 2 GRAM, ONCE DAILY (QD)
     Route: 042
  218. RITUXIMAB [Suspect]
     Active Substance: RITUXIMAB
     Dosage: 1 GRAM, ONCE DAILY (QD)
     Route: 042
  219. SULFASALAZINE [Suspect]
     Active Substance: SULFASALAZINE
     Indication: Rheumatoid arthritis
     Route: 048
  220. SULFASALAZINE [Suspect]
     Active Substance: SULFASALAZINE
     Dosage: 15 MILLIGRAM, WEEKLY (QW)
     Route: 058
  221. SULFASALAZINE [Suspect]
     Active Substance: SULFASALAZINE
  222. SULFASALAZINE [Suspect]
     Active Substance: SULFASALAZINE
     Route: 048
  223. SULFASALAZINE [Suspect]
     Active Substance: SULFASALAZINE
     Dosage: 25.0 MILLIGRAM
     Route: 058
  224. SULFASALAZINE [Suspect]
     Active Substance: SULFASALAZINE
  225. DICLOFENAC SODIUM [Suspect]
     Active Substance: DICLOFENAC SODIUM
     Indication: Product used for unknown indication
  226. HYDROCORTISONE [Suspect]
     Active Substance: HYDROCORTISONE
     Indication: Product used for unknown indication
  227. LEFLUNOMIDE [Suspect]
     Active Substance: LEFLUNOMIDE
     Indication: Rheumatoid arthritis
  228. LEFLUNOMIDE [Suspect]
     Active Substance: LEFLUNOMIDE
     Route: 048
  229. LEFLUNOMIDE [Suspect]
     Active Substance: LEFLUNOMIDE
     Route: 048
  230. LEFLUNOMIDE [Suspect]
     Active Substance: LEFLUNOMIDE
  231. LEFLUNOMIDE [Suspect]
     Active Substance: LEFLUNOMIDE
  232. LEFLUNOMIDE [Suspect]
     Active Substance: LEFLUNOMIDE
     Route: 048
  233. LEFLUNOMIDE [Suspect]
     Active Substance: LEFLUNOMIDE
  234. LEFLUNOMIDE [Suspect]
     Active Substance: LEFLUNOMIDE
  235. SIMPONI [Suspect]
     Active Substance: GOLIMUMAB
     Indication: Rheumatoid arthritis
     Route: 048
  236. SIRUKUMAB [Suspect]
     Active Substance: SIRUKUMAB
     Indication: Rheumatoid arthritis
  237. SIRUKUMAB [Suspect]
     Active Substance: SIRUKUMAB
     Indication: Prostatic specific antigen
     Route: 048
  238. GOLD SODIUM THIOMALATE [Suspect]
     Active Substance: GOLD SODIUM THIOMALATE
     Indication: Product used for unknown indication
     Route: 016
  239. SULFAMETHOXAZOLE AND TRIMETHOPRIM [Suspect]
     Active Substance: SULFAMETHOXAZOLE\TRIMETHOPRIM
     Indication: Product used for unknown indication
  240. SULFASALAZINE [Suspect]
     Active Substance: SULFASALAZINE
     Indication: Product used for unknown indication
  241. TOFACITINIB [Suspect]
     Active Substance: TOFACITINIB
     Indication: Product used for unknown indication
  242. TRAMADOL HCL [Suspect]
     Active Substance: TRAMADOL HYDROCHLORIDE
     Indication: Product used for unknown indication
  243. TRAMADOL HCL [Suspect]
     Active Substance: TRAMADOL HYDROCHLORIDE
  244. TRIAMCINOLONE ACETONIDE [Suspect]
     Active Substance: TRIAMCINOLONE ACETONIDE
     Indication: Product used for unknown indication
     Route: 013
  245. TRIAMCINOLONE ACETONIDE [Suspect]
     Active Substance: TRIAMCINOLONE ACETONIDE
     Route: 013
  246. TRIAMCINOLONE ACETONIDE [Suspect]
     Active Substance: TRIAMCINOLONE ACETONIDE
  247. TRIAMCINOLONE ACETONIDE [Suspect]
     Active Substance: TRIAMCINOLONE ACETONIDE
     Route: 013
  248. TRIAMCINOLONE ACETONIDE [Suspect]
     Active Substance: TRIAMCINOLONE ACETONIDE
  249. VITAMIN C [Suspect]
     Active Substance: ASCORBIC ACID
     Indication: Product used for unknown indication
  250. XELJANZ [Suspect]
     Active Substance: TOFACITINIB CITRATE
     Indication: Product used for unknown indication
  251. XELJANZ [Suspect]
     Active Substance: TOFACITINIB CITRATE
     Route: 048
  252. XELJANZ [Suspect]
     Active Substance: TOFACITINIB CITRATE
  253. XELJANZ [Suspect]
     Active Substance: TOFACITINIB CITRATE
  254. XELJANZ [Suspect]
     Active Substance: TOFACITINIB CITRATE
  255. XELJANZ [Suspect]
     Active Substance: TOFACITINIB CITRATE
  256. XELJANZ [Suspect]
     Active Substance: TOFACITINIB CITRATE
  257. XELJANZ [Suspect]
     Active Substance: TOFACITINIB CITRATE
  258. XELJANZ [Suspect]
     Active Substance: TOFACITINIB CITRATE
  259. XELJANZ [Suspect]
     Active Substance: TOFACITINIB CITRATE
  260. XELJANZ [Suspect]
     Active Substance: TOFACITINIB CITRATE
  261. XELJANZ [Suspect]
     Active Substance: TOFACITINIB CITRATE
  262. XELJANZ [Suspect]
     Active Substance: TOFACITINIB CITRATE
  263. XELJANZ [Suspect]
     Active Substance: TOFACITINIB CITRATE
  264. XELJANZ [Suspect]
     Active Substance: TOFACITINIB CITRATE
  265. XELJANZ [Suspect]
     Active Substance: TOFACITINIB CITRATE
  266. XELJANZ [Suspect]
     Active Substance: TOFACITINIB CITRATE
     Route: 030
  267. XELJANZ [Suspect]
     Active Substance: TOFACITINIB CITRATE
     Route: 030
  268. XELJANZ [Suspect]
     Active Substance: TOFACITINIB CITRATE
  269. AIMOVIG [Suspect]
     Active Substance: ERENUMAB-AOOE
     Indication: Migraine
  270. ALENDRONATE SODIUM\CHOLECALCIFEROL [Suspect]
     Active Substance: ALENDRONATE SODIUM\CHOLECALCIFEROL
     Indication: Rheumatoid arthritis
  271. APREMILAST [Suspect]
     Active Substance: APREMILAST
     Indication: Rheumatoid arthritis
  272. AZATHIOPRINE SODIUM [Suspect]
     Active Substance: AZATHIOPRINE SODIUM
     Indication: Rheumatoid arthritis
  273. DICLOFENAC DIETHYLAMINE [Suspect]
     Active Substance: DICLOFENAC DIETHYLAMINE
     Indication: Product used for unknown indication
  274. GOLIMUMAB [Suspect]
     Active Substance: GOLIMUMAB
     Indication: Rheumatoid arthritis
     Route: 058
  275. GOLIMUMAB [Suspect]
     Active Substance: GOLIMUMAB
  276. HUMIRA [Suspect]
     Active Substance: ADALIMUMAB
     Indication: Rheumatoid arthritis
     Route: 057
  277. HUMIRA [Suspect]
     Active Substance: ADALIMUMAB
     Route: 057
  278. IODINE [Suspect]
     Active Substance: IODINE
     Indication: Product used for unknown indication
  279. CLIOQUINOL\FLUMETHASONE [Suspect]
     Active Substance: CLIOQUINOL\FLUMETHASONE
     Indication: Product used for unknown indication
  280. METHOTREXATE [Suspect]
     Active Substance: METHOTREXATE
     Indication: Rheumatoid arthritis
  281. NEOMYCIN SULFATE [Suspect]
     Active Substance: NEOMYCIN SULFATE
     Indication: Rheumatoid arthritis
  282. PERIOGARD [Suspect]
     Active Substance: CHLORHEXIDINE GLUCONATE
     Indication: Product used for unknown indication
  283. PHENYLEPHRINE HYDROCHLORIDE [Suspect]
     Active Substance: PHENYLEPHRINE HYDROCHLORIDE
     Indication: Product used for unknown indication
  284. POVIDONE-IODINE [Suspect]
     Active Substance: POVIDONE-IODINE
     Indication: Product used for unknown indication
  285. CETIRIZINE HYDROCHLORIDE [Suspect]
     Active Substance: CETIRIZINE HYDROCHLORIDE
     Indication: Rheumatoid arthritis
  286. CETIRIZINE HYDROCHLORIDE\PSEUDOEPHEDRINE HYDROCHLORIDE [Suspect]
     Active Substance: CETIRIZINE HYDROCHLORIDE\PSEUDOEPHEDRINE HYDROCHLORIDE
     Indication: Rheumatoid arthritis
  287. CETIRIZINE HYDROCHLORIDE\PSEUDOEPHEDRINE HYDROCHLORIDE [Suspect]
     Active Substance: CETIRIZINE HYDROCHLORIDE\PSEUDOEPHEDRINE HYDROCHLORIDE
  288. CETIRIZINE HYDROCHLORIDE\PSEUDOEPHEDRINE HYDROCHLORIDE [Suspect]
     Active Substance: CETIRIZINE HYDROCHLORIDE\PSEUDOEPHEDRINE HYDROCHLORIDE
  289. RIBOFLAVIN [Suspect]
     Active Substance: RIBOFLAVIN
     Indication: Product used for unknown indication
  290. SODIUM BICARBONATE [Suspect]
     Active Substance: SODIUM BICARBONATE
     Indication: Product used for unknown indication
     Route: 042
  291. STELARA [Suspect]
     Active Substance: USTEKINUMAB
     Indication: Rheumatoid arthritis
     Route: 058
  292. THIAMINE [Suspect]
     Active Substance: THIAMINE
     Indication: Product used for unknown indication
  293. TOCILIZUMAB [Suspect]
     Active Substance: TOCILIZUMAB
     Indication: Rheumatoid arthritis
     Dosage: 10.0 MILLIGRAM, ONCE DAILY (QD)
  294. TOCILIZUMAB [Suspect]
     Active Substance: TOCILIZUMAB
     Dosage: 5 MILLIGRAM, 2X/DAY (BID)
  295. TOCILIZUMAB [Suspect]
     Active Substance: TOCILIZUMAB
     Route: 058
  296. TOCILIZUMAB [Suspect]
     Active Substance: TOCILIZUMAB
     Route: 058
  297. TOCILIZUMAB [Suspect]
     Active Substance: TOCILIZUMAB
     Route: 042
  298. TOCILIZUMAB [Suspect]
     Active Substance: TOCILIZUMAB
     Dosage: 10 MILLIGRAM, ONCE DAILY (QD)
     Route: 048
  299. TOCILIZUMAB [Suspect]
     Active Substance: TOCILIZUMAB
     Route: 042
  300. TOCILIZUMAB [Suspect]
     Active Substance: TOCILIZUMAB
  301. TOPIRAMATE [Suspect]
     Active Substance: TOPIRAMATE
     Indication: Product used for unknown indication
  302. USTEKINUMAB [Suspect]
     Active Substance: USTEKINUMAB
     Indication: Rheumatoid arthritis
  303. VITAMIN A [Suspect]
     Active Substance: VITAMIN A
     Indication: Product used for unknown indication
  304. ALENDRONIC ACID [Suspect]
     Active Substance: ALENDRONIC ACID
     Indication: Rheumatoid arthritis
  305. ALENDRONIC ACID [Suspect]
     Active Substance: ALENDRONIC ACID
     Route: 048
  306. ALENDRONIC ACID [Suspect]
     Active Substance: ALENDRONIC ACID
  307. CELEBREX [Suspect]
     Active Substance: CELECOXIB
     Indication: Product used for unknown indication
  308. CELEBREX [Suspect]
     Active Substance: CELECOXIB
  309. CELEBREX [Suspect]
     Active Substance: CELECOXIB
  310. CELEBREX [Suspect]
     Active Substance: CELECOXIB
  311. CHLORHEXIDINE GLUCONATE [Suspect]
     Active Substance: CHLORHEXIDINE GLUCONATE
     Indication: Product used for unknown indication
  312. CHLORHEXIDINE GLUCONATE\ISOPROPYL ALCOHOL [Suspect]
     Active Substance: CHLORHEXIDINE GLUCONATE\ISOPROPYL ALCOHOL
     Indication: Product used for unknown indication
  313. HYDROCORTISONE [Suspect]
     Active Substance: HYDROCORTISONE
     Indication: Product used for unknown indication
  314. HYDROCORTISONE PROBUTATE [Suspect]
     Active Substance: HYDROCORTISONE PROBUTATE
     Indication: Product used for unknown indication
  315. LEFLUNOMIDE [Suspect]
     Active Substance: LEFLUNOMIDE
     Indication: Rheumatoid arthritis
     Dosage: 10 MILLIGRAM, ONCE DAILY (QD)
  316. LEFLUNOMIDE [Suspect]
     Active Substance: LEFLUNOMIDE
  317. LEFLUNOMIDE [Suspect]
     Active Substance: LEFLUNOMIDE
     Dosage: 10 MILLIGRAM, ONCE DAILY (QD)
  318. LEFLUNOMIDE [Suspect]
     Active Substance: LEFLUNOMIDE
     Dosage: 20 MILLIGRAM, ONCE DAILY (QD)
  319. LEFLUNOMIDE [Suspect]
     Active Substance: LEFLUNOMIDE
     Dosage: 20 MILLIGRAM, ONCE DAILY (QD)
  320. METHYLPREDNISOLONE ACETATE [Suspect]
     Active Substance: METHYLPREDNISOLONE ACETATE
     Indication: Product used for unknown indication
  321. METHYLPREDNISOLONE ACETATE [Suspect]
     Active Substance: METHYLPREDNISOLONE ACETATE
  322. DICLOFENAC DIETHYLAMINE [Suspect]
     Active Substance: DICLOFENAC DIETHYLAMINE
     Indication: Product used for unknown indication
  323. DICLOFENAC DIETHYLAMINE [Suspect]
     Active Substance: DICLOFENAC DIETHYLAMINE
  324. TOPIRAMATE [Suspect]
     Active Substance: TOPIRAMATE
     Indication: Product used for unknown indication
  325. TOPIRAMATE [Suspect]
     Active Substance: TOPIRAMATE
  326. ATOMOXETINE HYDROCHLORIDE [Suspect]
     Active Substance: ATOMOXETINE HYDROCHLORIDE
     Indication: Product used for unknown indication
  327. ATOMOXETINE HYDROCHLORIDE [Suspect]
     Active Substance: ATOMOXETINE HYDROCHLORIDE

REACTIONS (123)
  - Depression [Fatal]
  - Discomfort [Fatal]
  - Dizziness [Fatal]
  - Drug intolerance [Fatal]
  - Dry mouth [Fatal]
  - Duodenal ulcer perforation [Fatal]
  - Epilepsy [Fatal]
  - Facet joint syndrome [Fatal]
  - Fibromyalgia [Fatal]
  - Abdominal discomfort [Fatal]
  - Abdominal distension [Fatal]
  - Abdominal pain upper [Fatal]
  - Adverse reaction [Fatal]
  - Alopecia [Fatal]
  - C-reactive protein abnormal [Fatal]
  - C-reactive protein increased [Fatal]
  - Condition aggravated [Fatal]
  - Confusional state [Fatal]
  - Contraindicated product administered [Fatal]
  - Decreased appetite [Fatal]
  - Diarrhoea [Fatal]
  - Drug hypersensitivity [Fatal]
  - Drug-induced liver injury [Fatal]
  - Dyspepsia [Fatal]
  - Dyspnoea [Fatal]
  - Exposure during pregnancy [Fatal]
  - Fall [Fatal]
  - Fatigue [Fatal]
  - Finger deformity [Fatal]
  - Folliculitis [Fatal]
  - Gait inability [Fatal]
  - Gastrointestinal disorder [Fatal]
  - Gastrooesophageal reflux disease [Fatal]
  - General physical health deterioration [Fatal]
  - Glossodynia [Fatal]
  - Grip strength decreased [Fatal]
  - Hand deformity [Fatal]
  - Headache [Fatal]
  - Ill-defined disorder [Fatal]
  - Infusion related reaction [Fatal]
  - Injection site reaction [Fatal]
  - Joint swelling [Fatal]
  - Live birth [Fatal]
  - Maternal exposure during pregnancy [Fatal]
  - Nausea [Fatal]
  - Onychomadesis [Fatal]
  - Onychomycosis [Fatal]
  - Pain [Fatal]
  - Pemphigus [Fatal]
  - Pericarditis [Fatal]
  - Psoriatic arthropathy [Fatal]
  - Rash [Fatal]
  - Rheumatic fever [Fatal]
  - Rheumatoid arthritis [Fatal]
  - Sleep disorder [Fatal]
  - Swelling [Fatal]
  - Synovitis [Fatal]
  - Systemic lupus erythematosus [Fatal]
  - Treatment failure [Fatal]
  - Type 2 diabetes mellitus [Fatal]
  - Urticaria [Fatal]
  - Wound [Fatal]
  - Arthropathy [Fatal]
  - Blister [Fatal]
  - Breast cancer stage III [Fatal]
  - Coeliac disease [Fatal]
  - Helicobacter infection [Fatal]
  - Hepatitis [Fatal]
  - Hypoaesthesia [Fatal]
  - Intentional product use issue [Fatal]
  - Joint range of motion decreased [Fatal]
  - Lip dry [Fatal]
  - Liver injury [Fatal]
  - Lower respiratory tract infection [Fatal]
  - Migraine [Fatal]
  - Muscular weakness [Fatal]
  - Nasopharyngitis [Fatal]
  - Paraesthesia [Fatal]
  - Pneumonia [Fatal]
  - Stomatitis [Fatal]
  - Abdominal pain [Fatal]
  - Anti-cyclic citrullinated peptide antibody positive [Fatal]
  - Arthralgia [Fatal]
  - Asthenia [Fatal]
  - Back injury [Fatal]
  - Blepharospasm [Fatal]
  - Blood cholesterol increased [Fatal]
  - Bursitis [Fatal]
  - Hepatic enzyme [Fatal]
  - Hepatic enzyme increased [Fatal]
  - Hypercholesterolaemia [Fatal]
  - Hypertension [Fatal]
  - Impaired healing [Fatal]
  - Inflammation [Fatal]
  - Injury [Fatal]
  - Insomnia [Fatal]
  - Irritable bowel syndrome [Fatal]
  - Joint range of motion decreased [Fatal]
  - Lung disorder [Fatal]
  - Memory impairment [Fatal]
  - Wound infection [Fatal]
  - Muscle injury [Fatal]
  - Muscle spasms [Fatal]
  - Musculoskeletal pain [Fatal]
  - Nail disorder [Fatal]
  - Nasopharyngitis [Fatal]
  - Night sweats [Fatal]
  - Obesity [Fatal]
  - Osteoarthritis [Fatal]
  - Peripheral swelling [Fatal]
  - Peripheral venous disease [Fatal]
  - Taste disorder [Fatal]
  - Systemic lupus erythematosus [Fatal]
  - Weight increased [Fatal]
  - Wheezing [Fatal]
  - Vomiting [Fatal]
  - Product quality issue [Fatal]
  - Therapeutic product effect decreased [Fatal]
  - Therapeutic product effect incomplete [Fatal]
  - Off label use [Fatal]
  - Drug ineffective [Fatal]
  - Product use issue [Fatal]
  - Product use in unapproved indication [Fatal]
